FAERS Safety Report 17930311 (Version 1)
Quarter: 2020Q2

REPORT INFORMATION
  Report Type: Spontaneous
  Country: US (occurrence: US)
  Receive Date: 20200623
  Receipt Date: 20200623
  Transmission Date: 20200714
  Serious: No
  Sender: FDA-Public Use
  Company Number: US-TEVA-2020-US-1789957

PATIENT
  Sex: Female

DRUGS (2)
  1. ALYQ [Suspect]
     Active Substance: TADALAFIL
     Route: 065
  2. REMODULIN [Concomitant]
     Active Substance: TREPROSTINIL
     Indication: PULMONARY ARTERIAL HYPERTENSION
     Dosage: 69NG/KG/MIN
     Route: 058
     Dates: start: 20141201

REACTIONS (1)
  - Adverse event [Unknown]
